FAERS Safety Report 6700422-X (Version None)
Quarter: 2010Q2

REPORT INFORMATION
  Report Type: 
  Country: None (occurrence: None)
  Receive Date: 20100428
  Receipt Date: 20100421
  Transmission Date: 20101027
  Serious: Yes (Other)
  Sender: FDA-Public Use
  Company Number: JP-ROCHE-699489

PATIENT
  Sex: Female

DRUGS (14)
  1. TOCILIZUMAB [Suspect]
     Indication: RHEUMATOID ARTHRITIS
     Route: 041
     Dates: start: 20090914, end: 20090914
  2. TOCILIZUMAB [Suspect]
     Route: 041
     Dates: start: 20091020, end: 20091020
  3. TOCILIZUMAB [Suspect]
     Route: 041
     Dates: start: 20091120, end: 20091120
  4. TOCILIZUMAB [Suspect]
     Route: 041
     Dates: start: 20091221, end: 20091221
  5. TOCILIZUMAB [Suspect]
     Route: 041
     Dates: start: 20100118, end: 20100118
  6. TOCILIZUMAB [Suspect]
     Route: 041
     Dates: start: 20100302
  7. METOLATE [Concomitant]
     Route: 048
     Dates: end: 20091220
  8. METOLATE [Concomitant]
     Route: 048
     Dates: start: 20091221, end: 20100117
  9. ISCOTIN [Concomitant]
     Dosage: FORM: PERORAL AGENT
     Route: 048
     Dates: start: 20090914, end: 20090921
  10. PREDONINE [Concomitant]
     Route: 048
     Dates: end: 20091119
  11. PREDONINE [Concomitant]
     Route: 048
     Dates: start: 20091120, end: 20091220
  12. PREDONINE [Concomitant]
     Route: 048
     Dates: start: 20091221, end: 20100117
  13. RANITIDINE HYDROCHLORIDE [Concomitant]
     Route: 048
  14. CELCOX [Concomitant]
     Route: 048

REACTIONS (1)
  - WHITE BLOOD CELL COUNT DECREASED [None]
